FAERS Safety Report 10911236 (Version 2)
Quarter: 2015Q2

REPORT INFORMATION
  Report Type: Spontaneous
  Country: US (occurrence: US)
  Receive Date: 20150312
  Receipt Date: 20150616
  Transmission Date: 20150821
  Serious: No
  Sender: FDA-Public Use
  Company Number: US-BRISTOL-MYERS SQUIBB COMPANY-BMS-2015-013404

PATIENT
  Age: 25 Year
  Sex: Female

DRUGS (2)
  1. SPRYCEL [Suspect]
     Active Substance: DASATINIB
     Indication: CHRONIC MYELOID LEUKAEMIA
     Dosage: 100 MG, QD
     Route: 048
     Dates: start: 20150209, end: 20150210
  2. SPRYCEL [Suspect]
     Active Substance: DASATINIB
     Dosage: 100 MG, QD
     Route: 048
     Dates: start: 20150212, end: 20150213

REACTIONS (10)
  - Urticaria [Unknown]
  - Pyrexia [Unknown]
  - Gingival pain [Unknown]
  - Anxiety [Unknown]
  - Pain [Unknown]
  - Pain in jaw [Unknown]
  - Nausea [Unknown]
  - Gingival bleeding [Unknown]
  - Crying [Unknown]
  - Tremor [Unknown]

NARRATIVE: CASE EVENT DATE: 20150209
